FAERS Safety Report 8775077 (Version 3)
Quarter: 2013Q3

REPORT INFORMATION
  Report Type: Report from Study
  Country: CA (occurrence: CA)
  Receive Date: 20120908
  Receipt Date: 20130711
  Transmission Date: 20140515
  Serious: Yes (Life-Threatening, Other)
  Sender: FDA-Public Use
  Company Number: PHHY2012CA078077

PATIENT
  Sex: Female

DRUGS (16)
  1. ACLASTA [Suspect]
     Indication: OSTEOPOROSIS
     Dosage: 5MG/100ML YEARLY
     Route: 042
     Dates: start: 20090715
  2. ACLASTA [Suspect]
     Dosage: 5MG/100ML YEARLY
     Route: 042
     Dates: start: 20100629
  3. ACLASTA [Suspect]
     Dosage: 5MG/100ML YEARLY
     Route: 042
     Dates: start: 20110929
  4. ACLASTA [Suspect]
     Dosage: 5MG/100ML YEARLY
     Route: 042
     Dates: start: 20120927
  5. CLONAZEPAM [Concomitant]
     Dosage: 0.5 MG, PM
  6. MAGNESIUM [Concomitant]
  7. CO ENZYME Q10                      /02323801/ [Concomitant]
  8. ZANTAC [Concomitant]
     Dosage: 150 MG, BID
  9. OMNARIS [Concomitant]
  10. VITAMIN B12 [Concomitant]
     Dosage: MONTHLY
  11. VITAMIN C [Concomitant]
  12. VITAMIN D [Concomitant]
  13. CALCIUM [Concomitant]
  14. VITAMIN E [Concomitant]
  15. OCUVITE                            /07648701/ [Concomitant]
  16. ELAVIL [Concomitant]
     Dosage: 10 MG, NIGHTLY

REACTIONS (1)
  - Lung neoplasm malignant [Not Recovered/Not Resolved]
